FAERS Safety Report 5371535-2 (Version None)
Quarter: 2007Q2

REPORT INFORMATION
  Report Type: 
  Country: None (occurrence: None)
  Receive Date: 20070626
  Receipt Date: 20070614
  Transmission Date: 20071010
  Serious: No
  Sender: FDA-Public Use
  Company Number: US020295

PATIENT
  Age: 73 Year
  Sex: Female
  Weight: 46.2669 kg

DRUGS (5)
  1. FENTORA [Suspect]
     Dosage: 1600 UG ONCE BUCCAL
     Route: 002
     Dates: start: 20061201, end: 20061201
  2. LIDODERM [Suspect]
     Indication: OSTEOPOROSIS
     Dosage: 6 PATCHES TOPICAL
     Route: 061
  3. FOSAMAX [Concomitant]
  4. TYLENOL [Concomitant]
  5. MEDICATION FOR ALZEIHMER'S DISEASE [Concomitant]

REACTIONS (4)
  - ACCIDENTAL EXPOSURE [None]
  - FLUSHING [None]
  - HYPERHIDROSIS [None]
  - OVERDOSE [None]
